FAERS Safety Report 10708690 (Version 1)
Quarter: 2015Q1

REPORT INFORMATION
  Report Type: Spontaneous
  Country: MZ (occurrence: MZ)
  Receive Date: 20150113
  Receipt Date: 20150113
  Transmission Date: 20150721
  Serious: Yes (Death)
  Sender: FDA-Public Use
  Company Number: MZ-ASTRAZENECA-2015SE03271

PATIENT
  Sex: Male

DRUGS (1)
  1. MERONEM [Suspect]
     Active Substance: MEROPENEM
     Route: 042

REACTIONS (1)
  - Death [Fatal]
